FAERS Safety Report 9495079 (Version 1)
Quarter: 2013Q3

REPORT INFORMATION
  Report Type: Spontaneous
  Country: US (occurrence: US)
  Receive Date: 20130903
  Receipt Date: 20130903
  Transmission Date: 20140515
  Serious: Yes (Congenital Anomaly, Other)
  Sender: FDA-Public Use
  Company Number: US-PFIZER INC-2013251987

PATIENT
  Sex: Male

DRUGS (1)
  1. ZOLOFT [Suspect]
     Indication: DEPRESSION
     Dosage: UNK
     Route: 064
     Dates: start: 200405, end: 200412

REACTIONS (6)
  - Maternal exposure during pregnancy [Unknown]
  - Cleft lip [Unknown]
  - Cleft palate [Unknown]
  - Macrocephaly [Unknown]
  - Nasal disorder [Unknown]
  - Autism spectrum disorder [Unknown]
